FAERS Safety Report 5570910-0 (Version None)
Quarter: 2007Q4

REPORT INFORMATION
  Report Type: 
  Country: None (occurrence: None)
  Receive Date: 20071221
  Receipt Date: 20071213
  Transmission Date: 20080405
  Serious: Yes (Other)
  Sender: FDA-Public Use
  Company Number: US-AVENTIS-200718695US

PATIENT
  Sex: Female

DRUGS (7)
  1. LOVENOX [Suspect]
     Dosage: DOSE: UNK
     Route: 051
     Dates: start: 20071210, end: 20070101
  2. MORPHINE [Suspect]
     Dosage: DOSE: UNK
     Route: 042
  3. LYRICA [Concomitant]
     Dosage: DOSE: UNK
  4. DILANTIN [Concomitant]
     Dosage: DOSE: UNK
  5. MESTINON [Concomitant]
     Dosage: DOSE: UNK
  6. POTASSIUM CHLORIDE [Concomitant]
     Dosage: DOSE: UNK
  7. CARDIOVASCULAR SYSTEM DRUGS [Concomitant]
     Dosage: DOSE: UNK

REACTIONS (4)
  - DRUG INTERACTION [None]
  - HEADACHE [None]
  - INJECTION SITE BRUISING [None]
  - SYSTOLIC HYPERTENSION [None]
